FAERS Safety Report 23236850 (Version 1)
Quarter: 2023Q4

REPORT INFORMATION
  Report Type: Spontaneous
  Country: US (occurrence: None)
  Receive Date: 20231127
  Receipt Date: 20231127
  Transmission Date: 20240110
  Serious: Yes (Other)
  Sender: FDA-Public Use
  Company Number: None

PATIENT
  Age: 70 Year
  Sex: Female
  Weight: 69.75 kg

DRUGS (12)
  1. LAGEVRIO [Suspect]
     Active Substance: MOLNUPIRAVIR
     Indication: COVID-19
     Dosage: OTHER QUANTITY : 4 CAPSULE(S);?FREQUENCY : TWICE A DAY;?
     Route: 048
     Dates: start: 20231121, end: 20231125
  2. ATORVASTATIN [Concomitant]
     Active Substance: ATORVASTATIN
  3. CALCIUM [Concomitant]
     Active Substance: CALCIUM
  4. VITAMIN D [Concomitant]
     Active Substance: VITAMIN D NOS
  5. PROBIOTICS NOS [Concomitant]
     Active Substance: PROBIOTICS NOS
  6. MAGNESIUM GLYCINATE [Concomitant]
     Active Substance: MAGNESIUM GLYCINATE
  7. GLYCINE [Concomitant]
     Active Substance: GLYCINE
  8. BIOTIN [Concomitant]
     Active Substance: BIOTIN
  9. VITAMINS [Concomitant]
     Active Substance: VITAMINS
  10. COLLAGEN [Concomitant]
     Active Substance: COLLAGEN
  11. peptides [Concomitant]
  12. FIBER [Concomitant]

REACTIONS (6)
  - Nausea [None]
  - Dizziness [None]
  - Tremor [None]
  - Parkinson^s disease [None]
  - Gastric pH decreased [None]
  - Gastrointestinal pain [None]

NARRATIVE: CASE EVENT DATE: 20231123
